FAERS Safety Report 5290662-1 (Version None)
Quarter: 2007Q2

REPORT INFORMATION
  Report Type: 
  Country: None (occurrence: None)
  Receive Date: 20070405
  Receipt Date: 20070405
  Transmission Date: 20071010
  Serious: Yes (Hospitalization)
  Sender: FDA-Public Use
  Company Number: None

PATIENT
  Sex: Male
  Weight: 133.4 kg

DRUGS (13)
  1. WARFARIN SODIUM [Suspect]
     Indication: ANTICOAGULANT THERAPY
     Dosage: BY MOUTH DAILY
     Route: 048
     Dates: end: 20060908
  2. TACROLIMUS [Concomitant]
  3. DEXAMETHASONE [Concomitant]
  4. AZITHROMYCIN [Concomitant]
  5. CEFEPIME [Concomitant]
  6. AMIODARONE HCL [Concomitant]
  7. ISOSORBIDE DINITRATE [Concomitant]
  8. HYDRALAZINE HCL [Concomitant]
  9. ASPIRIN [Concomitant]
  10. PANTOPRAZOLE [Concomitant]
  11. ALBUTEROL [Concomitant]
  12. IPRATROPIUM BROMIDE [Concomitant]
  13. SIROLIMUS [Concomitant]

REACTIONS (3)
  - INTERNATIONAL NORMALISED RATIO INCREASED [None]
  - PULMONARY ALVEOLAR HAEMORRHAGE [None]
  - PULMONARY EMBOLISM [None]
